FAERS Safety Report 9510699 (Version 2)
Quarter: 2013Q4

REPORT INFORMATION
  Report Type: Spontaneous
  Country: US (occurrence: US)
  Receive Date: 20130909
  Receipt Date: 20131018
  Transmission Date: 20140711
  Serious: No
  Sender: FDA-Public Use
  Company Number: US-009507513-1309USA003032

PATIENT
  Sex: 0

DRUGS (1)
  1. EMEND [Suspect]

REACTIONS (1)
  - Drug hypersensitivity [Unknown]
